FAERS Safety Report 7075994-9 (Version None)
Quarter: 2010Q4

REPORT INFORMATION
  Report Type: 
  Country: None (occurrence: None)
  Receive Date: 20101101
  Receipt Date: 20101021
  Transmission Date: 20110411
  Serious: No
  Sender: FDA-Public Use
  Company Number: US-BIOGENIDEC-2010BI037402

PATIENT
  Age: 46 Year
  Sex: Female

DRUGS (1)
  1. TYSABRI [Suspect]
     Indication: MULTIPLE SCLEROSIS
     Route: 042
     Dates: start: 20070202

REACTIONS (5)
  - BALANCE DISORDER [None]
  - DYSPHAGIA [None]
  - HEMIPARESIS [None]
  - HYPOAESTHESIA [None]
  - VISUAL ACUITY REDUCED [None]
